FAERS Safety Report 6343991-4 (Version None)
Quarter: 2009Q3

REPORT INFORMATION
  Report Type: 
  Country: None (occurrence: None)
  Receive Date: 20090908
  Receipt Date: 20090908
  Transmission Date: 20100115
  Serious: Yes (Death, Life-Threatening)
  Sender: FDA-Public Use
  Company Number: JP-BAYER-200912937BYL

PATIENT
  Age: 48 Year
  Sex: Male
  Weight: 77 kg

DRUGS (13)
  1. NEXAVAR [Suspect]
     Indication: HEPATIC NEOPLASM MALIGNANT
     Dosage: TOTAL DAILY DOSE: 800 MG  UNIT DOSE: 200 MG
     Route: 048
     Dates: start: 20090609, end: 20090806
  2. NAPROXEN [Concomitant]
     Route: 048
     Dates: start: 20090420
  3. OMEPRAL [Concomitant]
     Route: 048
     Dates: start: 20080201
  4. URSO 250 [Concomitant]
     Route: 048
     Dates: start: 20070601
  5. LIVACT [Concomitant]
     Route: 048
     Dates: start: 20090127
  6. OXINORM [Concomitant]
     Route: 048
     Dates: start: 20090706
  7. NOVAMIN [Concomitant]
     Route: 048
     Dates: start: 20090706
  8. OXYCONTIN [Concomitant]
     Route: 048
     Dates: start: 20090713, end: 20090818
  9. LASIX [Concomitant]
     Route: 048
     Dates: start: 20090728
  10. ALDACTONE [Concomitant]
     Route: 048
     Dates: start: 20090728
  11. DUROTEP [Concomitant]
     Route: 062
     Dates: start: 20090819
  12. ANPEC [Concomitant]
     Route: 054
     Dates: start: 20090819
  13. RINDERON [Concomitant]
     Route: 048
     Dates: start: 20090819

REACTIONS (2)
  - HEPATIC NEOPLASM MALIGNANT [None]
  - LIVER DISORDER [None]
